FAERS Safety Report 12974253 (Version 1)
Quarter: 2016Q4

REPORT INFORMATION
  Report Type: Spontaneous
  Country: IT (occurrence: IT)
  Receive Date: 20161125
  Receipt Date: 20161125
  Transmission Date: 20170207
  Serious: Yes (Hospitalization)
  Sender: FDA-Public Use
  Company Number: IT-ASTRAZENECA-2016SF23002

PATIENT
  Age: 23510 Day
  Sex: Female

DRUGS (5)
  1. XANAX [Suspect]
     Active Substance: ALPRAZOLAM
     Indication: ANXIETY
     Dosage: 20 ORAL DROPS SOLUTION
     Route: 048
     Dates: start: 20161107, end: 20161107
  2. SEROQUEL [Suspect]
     Active Substance: QUETIAPINE FUMARATE
     Indication: BIPOLAR DISORDER
     Dosage: 5 DOSAGE FORM TOTALLY ORALLY
     Route: 048
     Dates: start: 20161107, end: 20161107
  3. RIVOTRIL [Suspect]
     Active Substance: CLONAZEPAM
     Indication: ANXIETY
     Dosage: 2,5 MG/ ML, 50 DROPS
     Route: 048
     Dates: start: 20161107, end: 20161107
  4. TAVOR (LORAZEPAM) [Suspect]
     Active Substance: LORAZEPAM
     Indication: ANXIETY
     Dosage: 1 MG TABLET, 20 MG TOTAL DOSAGE
     Route: 048
     Dates: start: 20161107, end: 20161107
  5. VALPROATE [Suspect]
     Active Substance: VALPROIC ACID
     Route: 048
     Dates: start: 20161107, end: 20161107

REACTIONS (2)
  - Bradyphrenia [Recovered/Resolved]
  - Overdose [Recovered/Resolved]

NARRATIVE: CASE EVENT DATE: 20161107
